FAERS Safety Report 8240382-6 (Version None)
Quarter: 2012Q1

REPORT INFORMATION
  Report Type: 
  Country: None (occurrence: None)
  Receive Date: 20120328
  Receipt Date: 20120323
  Transmission Date: 20120608
  Serious: Yes (Hospitalization)
  Sender: FDA-Public Use
  Company Number: JP-PFIZER INC-2012076311

PATIENT
  Age: 77 Year
  Sex: Male
  Weight: 48 kg

DRUGS (17)
  1. TEMSIROLIMUS [Suspect]
     Dosage: 20 MG, UNK
     Dates: start: 20110815
  2. CHLOR-TRIMETON [Concomitant]
     Indication: PROPHYLAXIS
     Dosage: 10 MG, 1X/DAY
     Route: 042
  3. TRAMADOL HYDROCHLORIDE [Concomitant]
     Indication: RENAL CELL CARCINOMA
     Dosage: 25 MG, 3X/DAY
     Route: 048
  4. PL GRAN. [Concomitant]
     Indication: NASOPHARYNGITIS
     Dosage: 1 G, 3X/DAY
     Route: 048
     Dates: end: 20110606
  5. FAMOTIDINE [Concomitant]
     Dosage: 20 MG, 1X/DAY
     Route: 048
  6. CEFAZOLIN SODIUM [Concomitant]
     Indication: DIARRHOEA
     Dosage: 1 DF, 3X/DAY
     Route: 048
  7. TEMSIROLIMUS [Suspect]
     Indication: RENAL CELL CARCINOMA
     Dosage: 25 MG, UNK
     Dates: start: 20110531
  8. TEMSIROLIMUS [Suspect]
     Dosage: 25 MG, UNK
     Dates: start: 20110607
  9. ETODOLAC [Concomitant]
     Indication: RENAL CELL CARCINOMA
     Dosage: 200 MG, 2X/DAY
     Route: 048
  10. MAGMITT [Concomitant]
     Dosage: 2 DF, 3X/DAY
     Route: 048
     Dates: start: 20110602
  11. PYRINAZIN [Concomitant]
     Indication: RENAL CELL CARCINOMA
     Dosage: 0.3 G, 3X/DAY
     Route: 048
  12. MS HOT PACK [Concomitant]
     Indication: RENAL CELL CARCINOMA
     Dosage: UNK
  13. TEMSIROLIMUS [Suspect]
     Dosage: 20 MG, UNK
     Dates: start: 20110801
  14. TEMSIROLIMUS [Suspect]
     Dosage: 20 MG, UNK
     Dates: start: 20110808
  15. TEMSIROLIMUS [Suspect]
     Dosage: 25 MG, UNK
     Dates: start: 20110627
  16. TEMSIROLIMUS [Suspect]
     Dosage: 20 MG, UNK
     Dates: start: 20110725
  17. GASMOTIN [Concomitant]
     Dosage: 5 MG, 3X/DAY
     Route: 048

REACTIONS (1)
  - HYPERKALAEMIA [None]
